FAERS Safety Report 6037290-8 (Version None)
Quarter: 2009Q1

REPORT INFORMATION
  Report Type: 
  Country: None (occurrence: None)
  Receive Date: 20090114
  Receipt Date: 20090112
  Transmission Date: 20090719
  Serious: Yes (Hospitalization)
  Sender: FDA-Public Use
  Company Number: B0554121A

PATIENT
  Age: 57 Year
  Sex: Female

DRUGS (2)
  1. AUGMENTIN '125' [Suspect]
     Indication: INFECTION PROPHYLAXIS
     Dosage: 875MG TWICE PER DAY
     Route: 048
     Dates: start: 20081225, end: 20081231
  2. AZITHROMYCIN [Suspect]
     Indication: INFECTION PROPHYLAXIS
     Dosage: 100MG PER DAY
     Route: 065
     Dates: start: 20090109, end: 20090110

REACTIONS (1)
  - CELLULITIS [None]
